FAERS Safety Report 9683902 (Version 1)
Quarter: 2013Q4

REPORT INFORMATION
  Report Type: Spontaneous
  Country: US (occurrence: US)
  Receive Date: 20131112
  Receipt Date: 20131112
  Transmission Date: 20140711
  Serious: No
  Sender: FDA-Public Use
  Company Number: US-MALLINCKRODT-T201304708

PATIENT
  Sex: Female
  Weight: 61.22 kg

DRUGS (4)
  1. FENTANYL TRANSDERMAL SYSTEM [Suspect]
     Indication: PAIN
     Dosage: 75 MCG/HR, Q 3 DAYS
     Route: 062
     Dates: start: 2011
  2. VICODIN [Concomitant]
     Route: 048
  3. KLONOPIN [Concomitant]
     Dosage: 2 MG, 3 TABS ONCE DAILY
     Route: 048
  4. PHENERGAN                          /00033001/ [Concomitant]
     Dosage: UNK
     Route: 065

REACTIONS (1)
  - Drug screen positive [Not Recovered/Not Resolved]
